FAERS Safety Report 19366820 (Version 2)
Quarter: 2021Q3

REPORT INFORMATION
  Report Type: Spontaneous
  Country: RU (occurrence: RU)
  Receive Date: 20210603
  Receipt Date: 20210712
  Transmission Date: 20211014
  Serious: No
  Sender: FDA-Public Use
  Company Number: RU-B.I. PHARMACEUTICALS,INC./RIDGEFIELD-2021-BI-106410

PATIENT
  Age: 57 Year
  Sex: Male
  Weight: 91 kg

DRUGS (7)
  1. SYNJARDY [Suspect]
     Active Substance: EMPAGLIFLOZIN\METFORMIN HYDROCHLORIDE
     Indication: TYPE 2 DIABETES MELLITUS
     Dosage: 12.5+1000 TWICE A DAY
     Route: 048
     Dates: start: 20210503, end: 20210524
  2. ROSUVASTATIN. [Concomitant]
     Active Substance: ROSUVASTATIN
     Indication: CORONARY ARTERY DISEASE
     Route: 048
     Dates: start: 2020
  3. HEPTRAL [ADEMETIONINE] [Concomitant]
     Indication: CORONARY ARTERY DISEASE
     Route: 048
  4. CARDIOMAGNYL [ACETYLSALICYLIC ACID] [Concomitant]
     Indication: HYPERTENSION
  5. ROSUVASTATIN. [Concomitant]
     Active Substance: ROSUVASTATIN
     Indication: HYPERTENSION
  6. HEPTRAL [ADEMETIONINE] [Concomitant]
     Indication: HYPERTENSION
  7. CARDIOMAGNYL [ACETYLSALICYLIC ACID] [Concomitant]
     Indication: CORONARY ARTERY DISEASE
     Route: 048
     Dates: start: 2020

REACTIONS (3)
  - Ketosis [Recovered/Resolved]
  - Weight decreased [Unknown]
  - Ketonuria [Recovered/Resolved]

NARRATIVE: CASE EVENT DATE: 20210522
